FAERS Safety Report 18261610 (Version 2)
Quarter: 2020Q3

REPORT INFORMATION
  Report Type: Spontaneous
  Country: JP (occurrence: JP)
  Receive Date: 20200914
  Receipt Date: 20200917
  Transmission Date: 20201103
  Serious: Yes (Death, Hospitalization)
  Sender: FDA-Public Use
  Company Number: JP-BIODELIVERY SCIENCES INTERNATIONAL-E2B_00001326

PATIENT
  Sex: Female
  Weight: 39 kg

DRUGS (24)
  1. TAPENTADOL HYDROCHLORIDE [Suspect]
     Active Substance: TAPENTADOL HYDROCHLORIDE
     Indication: CANCER PAIN
     Dosage: 75 MG, BID
     Route: 048
     Dates: start: 20200525, end: 20200624
  2. ZINC ACETATE [Suspect]
     Active Substance: ZINC ACETATE
     Dosage: 50 MG, BID
     Route: 048
     Dates: start: 20200629
  3. OSIMERTINIB MESILATE [Suspect]
     Active Substance: OSIMERTINIB
     Dosage: 40 MG, QD
     Route: 048
     Dates: start: 20200702, end: 20200821
  4. SULPIRIDE [Suspect]
     Active Substance: SULPIRIDE
     Indication: NAUSEA
     Dosage: 50 MG, QD
     Route: 048
     Dates: start: 20200716
  5. TAPENTADOL HYDROCHLORIDE [Suspect]
     Active Substance: TAPENTADOL HYDROCHLORIDE
     Dosage: 50 MG, BID
     Route: 048
     Dates: start: 20200624, end: 20200716
  6. SENNOSIDE A [Concomitant]
     Active Substance: SENNOSIDE A
     Indication: CONSTIPATION
     Dosage: 12 MG, QD
     Route: 048
     Dates: start: 2020
  7. ELDECALCITOL [Concomitant]
     Active Substance: ELDECALCITOL
     Indication: OSTEOPOROSIS
     Dosage: 1 UG, QD
     Route: 048
     Dates: start: 2013
  8. PARACETAMOL [Concomitant]
     Active Substance: ACETAMINOPHEN
     Indication: CANCER PAIN
     Dosage: 500 MG, QID
     Route: 048
     Dates: start: 20200527
  9. LOXOPROFEN [Concomitant]
     Active Substance: LOXOPROFEN
     Indication: PAIN
     Dosage: 50 MG, QD
     Route: 062
     Dates: start: 2020
  10. CLOSTRIDIUM BUTYRICUM [Concomitant]
     Active Substance: CLOSTRIDIUM BUTYRICUM SPORES STRAIN M-55
     Indication: DIARRHOEA
     Dosage: 1 {DF}, PRN
     Route: 048
     Dates: start: 20200615
  11. NALDEMEDINE [Suspect]
     Active Substance: NALDEMEDINE
     Dosage: UNK
     Route: 048
     Dates: end: 20200708
  12. OSIMERTINIB MESILATE [Suspect]
     Active Substance: OSIMERTINIB
     Indication: NON-SMALL CELL LUNG CANCER
     Dosage: 80 MG, QD
     Route: 048
     Dates: start: 20200602, end: 20200625
  13. OXYCODONE HYDROCHLORIDE. [Suspect]
     Active Substance: OXYCODONE HYDROCHLORIDE
     Indication: CANCER PAIN
     Dosage: 3 MG, PRN
     Route: 048
     Dates: start: 20200528
  14. COLECALCIFEROL/CALCIUM CARBONATE/MAGNESIUM CARBONATE [Concomitant]
     Active Substance: CALCIUM CARBONATE\CHOLECALCIFEROL\MAGNESIUM CARBONATE
     Indication: HYPOCALCAEMIA
     Dosage: 2 {DF}, QD
     Route: 048
     Dates: start: 20200602
  15. MAGNESIUM OXIDE. [Concomitant]
     Active Substance: MAGNESIUM OXIDE
     Indication: CONSTIPATION PROPHYLAXIS
     Dosage: 660 MG, TID
     Route: 048
     Dates: start: 20200521
  16. NALDEMEDINE [Suspect]
     Active Substance: NALDEMEDINE
     Indication: CONSTIPATION
     Dosage: UNKNOWN; UNKNOWN
     Route: 048
  17. TAPENTADOL HYDROCHLORIDE [Suspect]
     Active Substance: TAPENTADOL HYDROCHLORIDE
     Dosage: 25 MG, BID
     Route: 048
     Dates: start: 20200717
  18. ZINC ACETATE [Suspect]
     Active Substance: ZINC ACETATE
     Indication: HYPOZINCAEMIA
     Dosage: UNKNOWN; UNKNOWN
     Route: 048
  19. MAGNESIUM OXIDE. [Concomitant]
     Active Substance: MAGNESIUM OXIDE
     Dosage: UNK
     Route: 048
     Dates: start: 20200624
  20. METOCLOPRAMIDE HYDROCHLORIDE. [Concomitant]
     Active Substance: METOCLOPRAMIDE HYDROCHLORIDE
     Indication: NAUSEA
     Dosage: 5 MG, TID
     Route: 048
     Dates: start: 20200605, end: 20200624
  21. PROCHLORPERAZINE MALEATE. [Concomitant]
     Active Substance: PROCHLORPERAZINE MALEATE
     Indication: NAUSEA
     Dosage: 5 MG, QD
     Route: 048
     Dates: start: 20200521
  22. HYOSCINE BUTYLBROMIDE [Concomitant]
     Active Substance: BUTYLSCOPOLAMINE BROMIDE
     Indication: ABDOMINAL PAIN
     Dosage: 10 MG, QD
     Route: 048
     Dates: start: 20200707
  23. OLANZAPINE. [Concomitant]
     Active Substance: OLANZAPINE
     Indication: PRODUCT USED FOR UNKNOWN INDICATION
     Dosage: UNKNOWN; UNKNOWN
     Route: 048
     Dates: start: 20200624, end: 20200716
  24. DENOSUMAB [Concomitant]
     Active Substance: DENOSUMAB
     Indication: METASTASES TO BONE
     Dosage: 120 MG EVERY 4 WEEKS
     Route: 058
     Dates: start: 20200602

REACTIONS (2)
  - Lung neoplasm malignant [Fatal]
  - Condition aggravated [Fatal]

NARRATIVE: CASE EVENT DATE: 20200818
